FAERS Safety Report 6542150 (Version 8)
Quarter: 2014Q2

REPORT INFORMATION
  Report Type: Spontaneous
  Country: US (occurrence: US)
  Receive Date: 20080204
  Receipt Date: 20140523
  Transmission Date: 20141212
  Serious: Yes (Hospitalization, Other)
  Sender: FDA-Public Use
  Company Number: US-ROCHE-527489

PATIENT
  Age: 25 Year
  Sex: Male
  Weight: 83.9 kg

DRUGS (2)
  1. ACCUTANE [Suspect]
     Indication: PRODUCT USED FOR UNKNOWN INDICATION
     Route: 065
     Dates: start: 199901, end: 199906
  2. ACCUTANE [Suspect]
     Route: 065
     Dates: start: 200108, end: 200108

REACTIONS (10)
  - Crohn^s disease [Not Recovered/Not Resolved]
  - Pancreatitis [Recovered/Resolved]
  - Inflammatory bowel disease [Recovering/Resolving]
  - Depression [Not Recovered/Not Resolved]
  - Panic attack [Unknown]
  - Anxiety [Not Recovered/Not Resolved]
  - Large intestine polyp [Unknown]
  - Phobia [Unknown]
  - Vertigo [Unknown]
  - Hypertension [Recovered/Resolved]
